FAERS Safety Report 5338559-2 (Version None)
Quarter: 2007Q2

REPORT INFORMATION
  Report Type: 
  Country: None (occurrence: None)
  Receive Date: 20070322
  Receipt Date: 20060306
  Transmission Date: 20071010
  Serious: Yes (Other)
  Sender: FDA-Public Use
  Company Number: 200610223BCC

PATIENT
  Sex: Male
  Weight: 60.782 kg

DRUGS (3)
  1. ALEVE [Suspect]
     Dosage: 220 MG, HS, ORAL
     Route: 048
     Dates: start: 20051201
  2. ASPIRIN [Suspect]
     Dosage: ORAL
     Route: 048
  3. COUMADIN [Concomitant]

REACTIONS (1)
  - HAEMATOCHEZIA [None]
